FAERS Safety Report 6283241-0 (Version None)
Quarter: 2009Q3

REPORT INFORMATION
  Report Type: 
  Country: None (occurrence: None)
  Receive Date: 20090722
  Receipt Date: 20090722
  Transmission Date: 20100115
  Serious: Yes (Disabling)
  Sender: FDA-Public Use
  Company Number: None

PATIENT
  Age: 74 Year
  Sex: Female
  Weight: 74.8435 kg

DRUGS (1)
  1. VYTORIN [Suspect]
     Indication: CHOLESTEROSIS
     Dosage: 1-40 MG CAP 1 A DAY BY MOUTH
     Route: 048
     Dates: start: 20050601, end: 20050801

REACTIONS (4)
  - BALANCE DISORDER [None]
  - COORDINATION ABNORMAL [None]
  - FALL [None]
  - MUSCULAR WEAKNESS [None]
